FAERS Safety Report 10375377 (Version 1)
Quarter: 2014Q1

REPORT INFORMATION
  Report Type: Spontaneous
  Country: US (occurrence: None)
  Receive Date: 20140306
  Receipt Date: 20140306
  Transmission Date: 20141002
  Serious: Yes (Other)
  Sender: FDA-Public Use
  Company Number: 163-21880-13041509

PATIENT
  Age: 79 Year
  Sex: Male
  Weight: 60.78 kg

DRUGS (1)
  1. REVLIMID [Suspect]
     Indication: MYELODYSPLASTIC SYNDROME
     Route: 048
     Dates: start: 201208, end: 2012

REACTIONS (4)
  - Red blood cell count decreased [None]
  - Platelet count decreased [None]
  - Diarrhoea [None]
  - Drug dose omission [None]
